FAERS Safety Report 9558397 (Version 2)
Quarter: 2014Q1

REPORT INFORMATION
  Report Type: Spontaneous
  Country: ES (occurrence: ES)
  Receive Date: 20130926
  Receipt Date: 20140127
  Transmission Date: 20141002
  Serious: Yes (Hospitalization)
  Sender: FDA-Public Use
  Company Number: ES-CELGENEUS-144-21880-13092303

PATIENT
  Age: 82 Year
  Sex: Male

DRUGS (12)
  1. REVLIMID [Suspect]
     Indication: PLASMA CELL MYELOMA
     Dosage: 25 MILLIGRAM
     Route: 048
     Dates: start: 20130813
  2. REVLIMID [Suspect]
     Dosage: 25 MILLIGRAM
     Route: 048
     Dates: start: 20130528, end: 20130827
  3. DEXAMETHASONE [Concomitant]
     Indication: PLASMA CELL MYELOMA
     Dosage: 20 MILLIGRAM
     Route: 065
     Dates: start: 20121211, end: 20130820
  4. DEXAMETHASONE [Concomitant]
     Dosage: 20 MILLIGRAM
     Route: 065
     Dates: start: 20121211, end: 20130903
  5. HEPARIN [Concomitant]
     Indication: PLASMA CELL MYELOMA
     Route: 065
  6. ASPIRINE [Concomitant]
     Indication: PLASMA CELL MYELOMA
     Route: 065
  7. ASA [Concomitant]
     Indication: ARRHYTHMIA
     Dosage: 100 MILLIGRAM
     Route: 048
     Dates: start: 20130826
  8. BISOPROLOL [Concomitant]
     Indication: HYPERTENSION
     Dosage: 2.5 MILLIGRAM
     Route: 048
     Dates: end: 20131115
  9. FUROSEMIDE [Concomitant]
     Indication: HYPERTENSION
     Dosage: 40 MILLIGRAM
     Route: 048
     Dates: start: 20121111, end: 20130528
  10. TAMSULOSINE [Concomitant]
     Indication: HYPERTENSION
     Dosage: .4 MILLIGRAM
     Route: 065
     Dates: start: 20121220, end: 20130528
  11. OMEPRAZOLE [Concomitant]
     Indication: PLASMA CELL MYELOMA
     Dosage: 20 MILLIGRAM
     Route: 065
  12. CALCIUM D [Concomitant]
     Indication: PLASMA CELL MYELOMA
     Dosage: 1000/800
     Route: 048
     Dates: start: 20121220, end: 20130528

REACTIONS (2)
  - Confusional state [Recovered/Resolved]
  - Ataxia [Recovered/Resolved]
